FAERS Safety Report 8397919-6 (Version None)
Quarter: 2012Q2

REPORT INFORMATION
  Report Type: 
  Country: None (occurrence: None)
  Receive Date: 20120531
  Receipt Date: 20120525
  Transmission Date: 20120825
  Serious: Yes (Other)
  Sender: FDA-Public Use
  Company Number: PHHY2012BR045365

PATIENT
  Age: 48 Year
  Sex: Female

DRUGS (1)
  1. METHERGINE [Suspect]
     Indication: MENORRHAGIA
     Dosage: 0.125 MG, TID
     Dates: start: 20120524

REACTIONS (1)
  - MENORRHAGIA [None]
